FAERS Safety Report 4880106-3 (Version None)
Quarter: 2006Q1

REPORT INFORMATION
  Report Type: 
  Country: None (occurrence: None)
  Receive Date: 20060113
  Receipt Date: 20060104
  Transmission Date: 20060701
  Serious: Yes (Hospitalization)
  Sender: FDA-Public Use
  Company Number: FR-BRISTOL-MYERS SQUIBB COMPANY-13244256

PATIENT
  Age: 71 Year
  Sex: Male
  Weight: 70 kg

DRUGS (12)
  1. ENDOXAN [Suspect]
     Indication: LYMPHOMA
     Route: 042
     Dates: start: 20051209, end: 20051209
  2. PRIMPERAN INJ [Suspect]
     Indication: LYMPHOMA
     Route: 042
     Dates: start: 20051209, end: 20051211
  3. SOLU-MEDROL [Suspect]
     Indication: LYMPHOMA
     Route: 048
     Dates: start: 20051209, end: 20051211
  4. DOXORUBICIN HCL [Suspect]
     Indication: LYMPHOMA
     Route: 042
     Dates: start: 20051209, end: 20051209
  5. ZOPHREN [Suspect]
     Indication: LYMPHOMA
     Route: 048
     Dates: start: 20051209, end: 20051211
  6. VINCRISTINE [Suspect]
  7. ACUPAN [Concomitant]
  8. ROCEPHIN [Concomitant]
  9. LOVENOX [Concomitant]
  10. KAYEXALATE [Concomitant]
  11. ALBUMINAR-20 [Concomitant]
     Dates: start: 20051209, end: 20051209
  12. ALBUMIN (HUMAN) [Concomitant]
     Dates: start: 20051208, end: 20051208

REACTIONS (6)
  - CARDIOPULMONARY FAILURE [None]
  - GENERALISED OEDEMA [None]
  - MYOCARDIAL ISCHAEMIA [None]
  - OEDEMA GENITAL [None]
  - PULMONARY OEDEMA [None]
  - PYREXIA [None]
